FAERS Safety Report 11748225 (Version 4)
Quarter: 2016Q1

REPORT INFORMATION
  Report Type: Spontaneous
  Country: US (occurrence: US)
  Receive Date: 20151117
  Receipt Date: 20160215
  Transmission Date: 20160525
  Serious: No
  Sender: FDA-Public Use
  Company Number: US-GLAXOSMITHKLINE-US2015GSK160713

PATIENT
  Age: 51 Year
  Sex: Male
  Weight: 119.27 kg

DRUGS (28)
  1. ALVESCO [Concomitant]
     Active Substance: CICLESONIDE
     Dosage: 1 PUFF(S), BID
     Dates: start: 20140721
  2. LEVAQUIN TABLET [Concomitant]
  3. OMEPRAZOLE CAPSULE [Concomitant]
     Active Substance: OMEPRAZOLE
  4. BREO ELLIPTA [Suspect]
     Active Substance: FLUTICASONE FUROATE\VILANTEROL TRIFENATATE
     Dosage: UNK
     Dates: start: 20140516
  5. FLUTICASONE NASAL SPRAY [Concomitant]
     Active Substance: FLUTICASONE\FLUTICASONE PROPIONATE
  6. LISINOPRIL. [Concomitant]
     Active Substance: LISINOPRIL
  7. ROCEPHIN SOLUTION FOR INJECTION [Concomitant]
  8. TRAMADOL TABLET [Concomitant]
  9. TUDORZA PRESSAIR [Concomitant]
     Active Substance: ACLIDINIUM BROMIDE
  10. ADVAIR DISKUS [Suspect]
     Active Substance: FLUTICASONE PROPIONATE\SALMETEROL XINAFOATE
     Dosage: UNK
  11. ADVAIR DISKUS [Suspect]
     Active Substance: FLUTICASONE PROPIONATE\SALMETEROL XINAFOATE
     Dosage: 1 PUFF(S), BID
     Route: 055
     Dates: start: 20151110
  12. CATAPRES [Concomitant]
     Active Substance: CLONIDINE HYDROCHLORIDE
  13. ADVAIR DISKUS [Suspect]
     Active Substance: FLUTICASONE PROPIONATE\SALMETEROL XINAFOATE
     Dosage: 1 PUFF(S), BID
     Route: 055
     Dates: start: 20150112
  14. AZITHROMYCIN TABLET [Concomitant]
  15. MEDROL [Concomitant]
     Active Substance: METHYLPREDNISOLONE
  16. NORCO [Concomitant]
     Active Substance: ACETAMINOPHEN\HYDROCODONE BITARTRATE
  17. BREO ELLIPTA [Suspect]
     Active Substance: FLUTICASONE FUROATE\VILANTEROL TRIFENATATE
     Indication: BRONCHITIS CHRONIC
     Dosage: UNK
     Route: 055
     Dates: start: 2015
  18. ALBUTEROL SULFATE NEBULISER SOLUTION [Concomitant]
     Active Substance: ALBUTEROL SULFATE
     Dosage: UNK, PRN
     Dates: start: 20150223
  19. ADVAIR DISKUS [Suspect]
     Active Substance: FLUTICASONE PROPIONATE\SALMETEROL XINAFOATE
     Indication: CHRONIC OBSTRUCTIVE PULMONARY DISEASE
     Dosage: UNK UNK, BID
     Route: 055
     Dates: start: 201303
  20. PROAIR HFA [Concomitant]
     Active Substance: ALBUTEROL SULFATE
  21. ADVAIR DISKUS [Suspect]
     Active Substance: FLUTICASONE PROPIONATE\SALMETEROL XINAFOATE
     Dosage: UNK UNK, QD
     Route: 055
     Dates: start: 201303
  22. BUSPIRONE HYDROCHLORIDE TABLET [Concomitant]
  23. DEXAMETHASONE SOLUTION FOR INJECTION [Concomitant]
     Active Substance: DEXAMETHASONE
  24. ONDANSETRON HYDROCHLORIDE. [Concomitant]
     Active Substance: ONDANSETRON HYDROCHLORIDE
  25. PROMETHAZINE [Concomitant]
     Active Substance: PROMETHAZINE\PROMETHAZINE HYDROCHLORIDE
  26. CELEXA [Concomitant]
     Active Substance: CITALOPRAM HYDROBROMIDE
  27. TESTOSTERONE CYPIONATE. [Concomitant]
     Active Substance: TESTOSTERONE CYPIONATE
  28. TRIAMTERENE + HYDROCHLOROTHIAZIDE TABLET [Concomitant]

REACTIONS (31)
  - Chest pain [Unknown]
  - Bronchitis [Unknown]
  - Ill-defined disorder [Unknown]
  - Drug dose omission [Unknown]
  - Adverse event [Unknown]
  - Cough [Unknown]
  - Sinus disorder [Unknown]
  - Chronic obstructive pulmonary disease [Unknown]
  - Intentional product use issue [Unknown]
  - Impaired work ability [Unknown]
  - Wheezing [Unknown]
  - Paranasal sinus discomfort [Unknown]
  - Feeling abnormal [Unknown]
  - Blood pressure increased [Unknown]
  - Nasal disorder [Unknown]
  - Pharyngeal erythema [Unknown]
  - Dyspnoea exertional [Unknown]
  - Obesity [Unknown]
  - Oropharyngeal pain [Unknown]
  - Rhinorrhoea [Unknown]
  - Sinus headache [Unknown]
  - Generalised anxiety disorder [Unknown]
  - Dyspnoea [Unknown]
  - Headache [Unknown]
  - Body temperature increased [Unknown]
  - Tympanic membrane hyperaemia [Unknown]
  - Tympanic membrane disorder [Unknown]
  - Swelling face [Unknown]
  - Fatigue [Unknown]
  - Breath sounds abnormal [Unknown]
  - Nasal congestion [Unknown]

NARRATIVE: CASE EVENT DATE: 201510
